FAERS Safety Report 8902906 (Version 2)
Quarter: 2012Q4

REPORT INFORMATION
  Report Type: 
  Country: US (occurrence: US)
  Receive Date: 20121112
  Receipt Date: 20121122
  Transmission Date: 20130627
  Serious: No
  Sender: FDA-Public Use
  Company Number: US-PFIZER INC-2012279631

PATIENT
  Age: 30 Year
  Sex: Female

DRUGS (9)
  1. VISTARIL [Suspect]
     Indication: ANXIETY
     Dosage: 50 mg, 3x/day as necessary
     Route: 048
     Dates: start: 20120831
  2. LEXAPRO [Suspect]
     Dosage: 10 mg, daily
     Route: 048
     Dates: start: 201209, end: 20120919
  3. LEXAPRO [Suspect]
     Dosage: 20 mg, 1x/day
     Route: 048
     Dates: start: 20120920, end: 20120921
  4. LEXAPRO [Suspect]
     Dosage: 10 mg, 1x/day
     Route: 048
     Dates: start: 20120926
  5. KLONOPIN [Suspect]
     Indication: ANXIETY
     Dosage: 0.5 mg, 2x/day
     Route: 048
     Dates: start: 20120911
  6. TOPAMAX [Suspect]
     Indication: MOOD SWINGS
     Dosage: 25 mg, Daily
     Dates: start: 20120921
  7. CYMBALTA [Suspect]
     Indication: DEPRESSED MOOD
     Dosage: 20 mg, Daily
     Route: 048
     Dates: start: 20120921, end: 20120926
  8. CYMBALTA [Suspect]
     Indication: ANXIETY
  9. ADIPEX [Concomitant]
     Indication: INCREASED APPETITE
     Dosage: UNK

REACTIONS (4)
  - Drug ineffective [Unknown]
  - Weight increased [Unknown]
  - Arthropathy [Unknown]
  - Depression [Unknown]
